FAERS Safety Report 4480831-2 (Version None)
Quarter: 2004Q4

REPORT INFORMATION
  Report Type: 
  Country: None (occurrence: None)
  Receive Date: 20041020
  Receipt Date: 20041020
  Transmission Date: 20050328
  Serious: No
  Sender: FDA-Public Use
  Company Number: None

PATIENT
  Age: 49 Year
  Sex: Male
  Weight: 67.1324 kg

DRUGS (11)
  1. TENOFOVIR (TDF) [Suspect]
     Indication: ACQUIRED IMMUNODEFICIENCY SYNDROME
     Dosage: 300 MG PO QD
     Route: 048
     Dates: start: 20011206, end: 20031003
  2. MYCOBUTIN [Concomitant]
  3. PRAVACHOL [Concomitant]
  4. ACV [Concomitant]
  5. KALETRA [Concomitant]
  6. 3TC [Concomitant]
  7. DDI [Concomitant]
  8. QUETIZIPINE [Concomitant]
  9. DIFLURAN [Concomitant]
  10. CELEXA [Concomitant]
  11. SEPTRA DS [Concomitant]

REACTIONS (1)
  - POLYDIPSIA [None]
